FAERS Safety Report 18793665 (Version 1)
Quarter: 2021Q1

REPORT INFORMATION
  Report Type: Spontaneous
  Country: US (occurrence: US)
  Receive Date: 20210126
  Receipt Date: 20210126
  Transmission Date: 20210419
  Serious: Yes (Death)
  Sender: FDA-Public Use
  Company Number: None

PATIENT
  Age: 66 Year
  Sex: Male

DRUGS (9)
  1. TRIUMEQ [Suspect]
     Active Substance: ABACAVIR SULFATE\DOLUTEGRAVIR SODIUM\LAMIVUDINE
     Indication: HIV INFECTION
     Dosage: ?          OTHER DOSE:600MG/50MG300MG;OTHER FREQUENCY:1 TABLET DAILY;?
     Route: 048
     Dates: start: 20190517, end: 20201219
  2. CLONAZEPAM 1MG [Concomitant]
     Active Substance: CLONAZEPAM
  3. OMEPRAZOLE 20MG [Concomitant]
     Active Substance: OMEPRAZOLE
  4. APTIVUS [Suspect]
     Active Substance: TIPRANAVIR
     Indication: HIV INFECTION
     Dosage: ?          OTHER FREQUENCY:2 CAPSULES BID;?
     Route: 048
     Dates: start: 20190412, end: 20201219
  5. LOSARTAN/HCTZ 100/12.5 [Concomitant]
  6. BACLOFEN 10MG [Concomitant]
     Active Substance: BACLOFEN
  7. PERCOCET [Concomitant]
     Active Substance: ACETAMINOPHEN\OXYCODONE HYDROCHLORIDE
  8. ROPINIROLE. [Concomitant]
     Active Substance: ROPINIROLE
  9. DICYCLOMINE 20MG [Concomitant]

REACTIONS (1)
  - Death [None]

NARRATIVE: CASE EVENT DATE: 20201219
